FAERS Safety Report 9300661 (Version 3)
Quarter: 2013Q4

REPORT INFORMATION
  Report Type: Spontaneous
  Country: US (occurrence: None)
  Receive Date: 20130107
  Receipt Date: 20131226
  Transmission Date: 20140711
  Serious: Yes (Other)
  Sender: FDA-Public Use
  Company Number: PHEH2012US020554

PATIENT
  Age: 35 Year
  Sex: Female

DRUGS (5)
  1. GILENYA [Suspect]
     Indication: MULTIPLE SCLEROSIS
     Dosage: 0.5 MG, QD, ORAL
     Route: 048
     Dates: start: 201205, end: 201212
  2. ADVIL (MEFENAMIC ACID) [Concomitant]
  3. TYLENOL (PARACETAMOL) [Concomitant]
  4. NUVIGIL (ARMODAFINIL) [Concomitant]
  5. LYRICA (PREGABALIN) [Concomitant]

REACTIONS (2)
  - Fatigue [None]
  - Pain [None]
